FAERS Safety Report 7241894-4 (Version None)
Quarter: 2011Q1

REPORT INFORMATION
  Report Type: 
  Country: None (occurrence: None)
  Receive Date: 20110124
  Receipt Date: 20110114
  Transmission Date: 20110831
  Serious: Yes (Hospitalization, Other)
  Sender: FDA-Public Use
  Company Number: FI-ABBOTT-11P-055-0695288-00

PATIENT
  Sex: Male

DRUGS (6)
  1. HUMIRA [Suspect]
     Indication: ANKYLOSING SPONDYLITIS
     Route: 058
     Dates: start: 20101018, end: 20101217
  2. PREDNISOLONE [Concomitant]
     Indication: ANKYLOSING SPONDYLITIS
     Route: 048
  3. ABSENOR [Concomitant]
     Indication: AFFECTIVE DISORDER
     Route: 048
  4. ARCOXIA [Concomitant]
     Indication: ANKYLOSING SPONDYLITIS
     Route: 048
     Dates: start: 20030101, end: 20101217
  5. ARAVA [Concomitant]
  6. ARAVA [Concomitant]
     Indication: ANKYLOSING SPONDYLITIS
     Route: 048
     Dates: start: 20070101

REACTIONS (7)
  - C-REACTIVE PROTEIN INCREASED [None]
  - PAIN [None]
  - DYSPNOEA EXERTIONAL [None]
  - CONDITION AGGRAVATED [None]
  - DYSPNOEA AT REST [None]
  - DYSPNOEA [None]
  - CARDIAC FAILURE [None]
